FAERS Safety Report 5949045-0 (Version None)
Quarter: 2008Q4

REPORT INFORMATION
  Report Type: 
  Country: None (occurrence: None)
  Receive Date: 20081111
  Receipt Date: 20081030
  Transmission Date: 20090506
  Serious: Yes (Disabling, Other)
  Sender: FDA-Public Use
  Company Number: GB-PFIZER INC-2008087526

PATIENT
  Sex: Female

DRUGS (5)
  1. GABAPENTIN [Suspect]
     Indication: PAIN
     Route: 048
     Dates: start: 20040701, end: 20040101
  2. OXYCONTIN [Concomitant]
     Route: 048
  3. OXYNORM [Concomitant]
     Route: 048
  4. DEXAMETHASONE [Concomitant]
     Route: 048
  5. CHEMOTHERAPY NOS [Concomitant]

REACTIONS (5)
  - BLISTER [None]
  - MOUTH ULCERATION [None]
  - OROPHARYNGEAL BLISTERING [None]
  - SKIN ULCER [None]
  - STEVENS-JOHNSON SYNDROME [None]
